FAERS Safety Report 7559260-0 (Version None)
Quarter: 2011Q2

REPORT INFORMATION
  Report Type: 
  Country: None (occurrence: None)
  Receive Date: 20110621
  Receipt Date: 20110620
  Transmission Date: 20111010
  Serious: Yes (Death, Hospitalization, Other)
  Sender: FDA-Public Use
  Company Number: VE-PFIZER INC-2011130069

PATIENT
  Age: 90 Year
  Sex: Female

DRUGS (1)
  1. CADUET [Suspect]
     Indication: HYPERTENSION
     Dosage: AMLODIPINE BESILATE 5MG/ ATORVASTATIN CALCIUM 20MG, QD
     Route: 048

REACTIONS (4)
  - FALL [None]
  - MENINGITIS BACTERIAL [None]
  - RESPIRATORY FAILURE [None]
  - HIP FRACTURE [None]
